FAERS Safety Report 5683679-6 (Version None)
Quarter: 2008Q1

REPORT INFORMATION
  Report Type: 
  Country: None (occurrence: None)
  Receive Date: 20080328
  Receipt Date: 20070108
  Transmission Date: 20080703
  Serious: Yes (Hospitalization)
  Sender: FDA-Public Use
  Company Number: US-BAYER-US-2006-023347

PATIENT
  Age: 28 Year
  Sex: Female
  Weight: 67 kg

DRUGS (1)
  1. MIRENA [Suspect]
     Indication: CONTRACEPTION
     Route: 015
     Dates: start: 20020601, end: 20060811

REACTIONS (7)
  - AMENORRHOEA [None]
  - CONSTIPATION [None]
  - DYSPAREUNIA [None]
  - ECTOPIC PREGNANCY [None]
  - HYPERPHAGIA [None]
  - METRORRHAGIA [None]
  - PAIN [None]
